FAERS Safety Report 5306741-6 (Version None)
Quarter: 2007Q2

REPORT INFORMATION
  Report Type: 
  Country: None (occurrence: None)
  Receive Date: 20070420
  Receipt Date: 20070402
  Transmission Date: 20071010
  Serious: Yes (Other)
  Sender: FDA-Public Use
  Company Number: CHNY2007HK01496

PATIENT
  Age: 29 Year
  Sex: Male

DRUGS (12)
  1. DEXTROMETHORPHAN HYDROBROMIDE [Suspect]
     Indication: INFLUENZA LIKE ILLNESS
  2. SENOKOT [Suspect]
  3. PARACETAMOL (NCH) (ACETAMINOPHEN (PARACETAMOL)) [Suspect]
  4. TRAMADOL HCL [Suspect]
     Indication: ABDOMINAL PAIN UPPER
     Dosage: 100 MG , INTRAMUSCULAR
     Route: 030
  5. METOCLOPRAMIDE [Suspect]
     Dosage: 10 MG, INTRAVENOUS
     Route: 042
  6. MORPHINE SULFATE [Suspect]
     Dosage: 2 MG, INTRAVENOUS
     Route: 042
  7. HYOSCINE HBR HYT [Suspect]
     Dosage: INTRAMUSCULAR
     Route: 030
  8. SLO-BID [Suspect]
  9. MOTILIUM [Suspect]
  10. PHENERGAN [Suspect]
  11. HYOSCINE HBR HYT [Suspect]
  12. MYLANTA/AUS/(ALUMINIUM HYDROXIDE GEL, DRIED, MAGNESIUM HYDROXIDE, SIME [Suspect]
     Dosage: ORAL
     Route: 048

REACTIONS (21)
  - ABDOMINAL PAIN UPPER [None]
  - AGITATION [None]
  - BLOOD GLUCOSE INCREASED [None]
  - BLOOD PRESSURE INCREASED [None]
  - CONFUSIONAL STATE [None]
  - DIARRHOEA [None]
  - ELECTROCARDIOGRAM QRS COMPLEX PROLONGED [None]
  - ELECTROCARDIOGRAM QT CORRECTED INTERVAL PROLONGED [None]
  - HEART RATE INCREASED [None]
  - HYPERTONIA [None]
  - HYPONATRAEMIA [None]
  - METABOLIC ACIDOSIS [None]
  - MUSCLE TWITCHING [None]
  - MYOCLONUS [None]
  - NO THERAPEUTIC RESPONSE [None]
  - NUCLEAR MAGNETIC RESONANCE IMAGING ABNORMAL [None]
  - QRS AXIS ABNORMAL [None]
  - RENAL IMPAIRMENT [None]
  - SEROTONIN SYNDROME [None]
  - VOMITING [None]
  - WHITE BLOOD CELL COUNT INCREASED [None]
